FAERS Safety Report 6241330-0 (Version None)
Quarter: 2009Q2

REPORT INFORMATION
  Report Type: 
  Country: None (occurrence: None)
  Receive Date: 20090623
  Receipt Date: 20090612
  Transmission Date: 20091009
  Serious: Yes (Other)
  Sender: FDA-Public Use
  Company Number: US-JNJFOC-20090604180

PATIENT

DRUGS (3)
  1. ACETAMINOPHEN [Suspect]
  2. ACETAMINOPHEN [Suspect]
     Indication: PYREXIA
  3. IBUPROFEN [Suspect]
     Indication: PYREXIA

REACTIONS (2)
  - DRUG INEFFECTIVE [None]
  - FEBRILE CONVULSION [None]
